FAERS Safety Report 21160718 (Version 1)
Quarter: 2022Q3

REPORT INFORMATION
  Report Type: Report from Study
  Country: FR (occurrence: FR)
  Receive Date: 20220802
  Receipt Date: 20220802
  Transmission Date: 20221026
  Serious: Yes (Other)
  Sender: FDA-Public Use
  Company Number: FR-PFIZER INC-202201018983

PATIENT

DRUGS (4)
  1. OXALIPLATIN [Suspect]
     Active Substance: OXALIPLATIN
     Indication: Neuroendocrine tumour
     Dosage: 85 MG/M2, CYCLIC (2-H INFUSION OF EVERY 2 WEEKS)
     Route: 042
  2. FLUOROURACIL [Suspect]
     Active Substance: FLUOROURACIL
     Indication: Neuroendocrine tumour
     Dosage: 400 MG/M2, CYCLIC (EVERY 2 WEEKS)
     Route: 040
  3. FLUOROURACIL [Suspect]
     Active Substance: FLUOROURACIL
     Dosage: 2400 MG/M2, CYCLIC (46-H INFUSION, EVERY 2 WEEKS)
     Route: 042
  4. LEUCOVORIN [Suspect]
     Active Substance: LEUCOVORIN
     Indication: Neuroendocrine tumour
     Dosage: 400 MG/M2, CYCLIC (2-H INFUSION OF EVERY 2 WEEKS)
     Route: 042

REACTIONS (1)
  - Neurotoxicity [Unknown]
